FAERS Safety Report 14191426 (Version 1)
Quarter: 2017Q4

REPORT INFORMATION
  Report Type: Spontaneous
  Country: CH (occurrence: CH)
  Receive Date: 20171115
  Receipt Date: 20171115
  Transmission Date: 20180321
  Serious: Yes (Death)
  Sender: FDA-Public Use
  Company Number: CH-BAYER-2017-215027

PATIENT
  Age: 26 Year
  Sex: Male

DRUGS (9)
  1. PARACETAMOL [Concomitant]
     Active Substance: ACETAMINOPHEN
     Dosage: 1 G, QID
     Route: 048
     Dates: start: 20171016, end: 20171017
  2. ASPIRIN. [Concomitant]
     Active Substance: ASPIRIN
     Indication: ANTICOAGULANT THERAPY
     Dosage: 250 MG, ONCE
     Dates: start: 20171016, end: 20171016
  3. HEPARIN SODIUM. [Suspect]
     Active Substance: HEPARIN SODIUM
     Indication: ANTICOAGULANT THERAPY
     Dosage: 50000 IU, IV BOLUS, ONCE
     Route: 040
     Dates: start: 20171017, end: 20171017
  4. HEPARIN SODIUM. [Suspect]
     Active Substance: HEPARIN SODIUM
     Indication: ANTICOAGULANT THERAPY
     Dosage: 20000 IU, QD, CONTINUAL DRIP INFUSION
     Route: 041
     Dates: start: 20171017, end: 20171018
  5. ASPEGIC [Suspect]
     Active Substance: ASPIRIN DL-LYSINE
     Dosage: 250 MG, ONCE
     Route: 048
     Dates: start: 20171016, end: 20171016
  6. MORPHINE HYDROCHLORIDE [Suspect]
     Active Substance: MORPHINE HYDROCHLORIDE
     Dosage: 5 MG, 3 DOSES, 16 IU PER HOUR, UNK
     Route: 058
     Dates: start: 20171017, end: 20171017
  7. CLEXANE [Suspect]
     Active Substance: ENOXAPARIN SODIUM
     Dosage: 40 MG, QD
     Route: 058
     Dates: start: 20171016, end: 20171016
  8. MORPHINE HYDROCHLORIDE [Suspect]
     Active Substance: MORPHINE HYDROCHLORIDE
     Dosage: 8 MG, Q4HR
     Route: 058
     Dates: start: 20171016, end: 20171017
  9. ASPIRIN CARDIO 100 MG [Suspect]
     Active Substance: ASPIRIN
     Indication: ANTICOAGULANT THERAPY
     Dosage: 100 MG, QD
     Route: 048
     Dates: start: 20171017, end: 20171017

REACTIONS (4)
  - Brain oedema [Fatal]
  - Cerebral haematoma [Fatal]
  - Drug administration error [Fatal]
  - Intracranial pressure increased [Fatal]

NARRATIVE: CASE EVENT DATE: 20171017
